FAERS Safety Report 23857691 (Version 2)
Quarter: 2025Q2

REPORT INFORMATION
  Report Type: Spontaneous
  Country: US (occurrence: US)
  Receive Date: 20240515
  Receipt Date: 20250410
  Transmission Date: 20250717
  Serious: No
  Sender: KINIKSA PHARMACEUTICALS
  Company Number: US-Kiniksa Pharmaceuticals Ltd.-2023KPU000814

PATIENT
  Age: 50 Year
  Sex: Female

DRUGS (2)
  1. ARCALYST [Suspect]
     Active Substance: RILONACEPT
     Indication: Pericarditis constrictive
     Route: 058
     Dates: start: 2023, end: 202308
  2. ARCALYST [Suspect]
     Active Substance: RILONACEPT
     Indication: Pericarditis
     Dates: start: 202310

REACTIONS (7)
  - SARS-CoV-2 test positive [Unknown]
  - Sinus congestion [Unknown]
  - Respiratory tract congestion [Unknown]
  - Oropharyngeal pain [Unknown]
  - Influenza like illness [Unknown]
  - Blood triglycerides increased [Recovered/Resolved]
  - Pericarditis constrictive [Unknown]

NARRATIVE: CASE EVENT DATE: 20230801
